FAERS Safety Report 11423392 (Version 1)
Quarter: 2015Q3

REPORT INFORMATION
  Report Type: Report from Study
  Country: IT (occurrence: IT)
  Receive Date: 20150827
  Receipt Date: 20150827
  Transmission Date: 20151125
  Serious: Yes (Other)
  Sender: FDA-Public Use
  Company Number: IT-ROCHE-557758

PATIENT

DRUGS (5)
  1. PREDNISONE. [Suspect]
     Active Substance: PREDNISONE
     Indication: SPLENIC MARGINAL ZONE LYMPHOMA
     Route: 065
  2. LIPOSOMAL DOXORUBICIN [Suspect]
     Active Substance: DOXORUBICIN HYDROCHLORIDE
     Indication: SPLENIC MARGINAL ZONE LYMPHOMA
     Route: 065
  3. CYCLOPHOSPHAMIDE. [Suspect]
     Active Substance: CYCLOPHOSPHAMIDE
     Indication: SPLENIC MARGINAL ZONE LYMPHOMA
     Route: 065
  4. VINCRISTINE [Suspect]
     Active Substance: VINCRISTINE
     Indication: SPLENIC MARGINAL ZONE LYMPHOMA
     Route: 065
  5. RITUXIMAB [Suspect]
     Active Substance: RITUXIMAB
     Indication: SPLENIC MARGINAL ZONE LYMPHOMA
     Dosage: DAY 8 OF THE FIRST CYCLE AND DAY 1 FOR SUBSEQUENT CYCLES
     Route: 042

REACTIONS (12)
  - Cerebrovascular accident [Unknown]
  - Hodgkin^s disease [Unknown]
  - Myelodysplastic syndrome [Unknown]
  - Pseudomonal sepsis [Unknown]
  - Mantle cell lymphoma [Unknown]
  - Pneumonia [Recovered/Resolved]
  - Hypersensitivity [Unknown]
  - Intestinal obstruction [Unknown]
  - Prostate cancer [Unknown]
  - Neutropenia [Unknown]
  - Bladder cancer [Unknown]
  - Malignant melanoma [Unknown]
